FAERS Safety Report 9601883 (Version 1)
Quarter: 2013Q4

REPORT INFORMATION
  Report Type: Spontaneous
  Country: US (occurrence: None)
  Receive Date: 20131004
  Receipt Date: 20131004
  Transmission Date: 20140711
  Serious: No
  Sender: FDA-Public Use
  Company Number: None

PATIENT
  Age: 64 None
  Sex: Female

DRUGS (1)
  1. ENBREL SURECLICK [Suspect]
     Route: 058
     Dates: start: 20130905, end: 20130922

REACTIONS (6)
  - Erythema [None]
  - Injection site bruising [None]
  - Gait disturbance [None]
  - Local swelling [None]
  - Local swelling [None]
  - Swelling face [None]
